FAERS Safety Report 6576239-6 (Version None)
Quarter: 2010Q1

REPORT INFORMATION
  Report Type: 
  Country: None (occurrence: None)
  Receive Date: 20100210
  Receipt Date: 20100127
  Transmission Date: 20100710
  Serious: Yes (Death, Life-Threatening, Hospitalization, Disabling, Other)
  Sender: FDA-Public Use
  Company Number: GB-RANBAXY-2009RR-21136

PATIENT
  Age: 85 Year
  Sex: Female
  Weight: 53 kg

DRUGS (13)
  1. SIMVASTATIN [Suspect]
     Indication: MYOCARDIAL ISCHAEMIA
     Dosage: 40 MG, QD
     Route: 048
     Dates: start: 20080410, end: 20080717
  2. ASPIRIN [Concomitant]
     Indication: MYOCARDIAL ISCHAEMIA
     Dosage: 75 MG, QD
     Route: 048
  3. ASPIRIN [Concomitant]
     Indication: ANGINA PECTORIS
  4. NITROGLYCERIN [Concomitant]
     Indication: ANGINA PECTORIS
     Dosage: UNK
     Route: 065
     Dates: start: 20080402
  5. ISMN [Concomitant]
     Indication: MYOCARDIAL ISCHAEMIA
     Dosage: 60 MG, QD
     Route: 065
     Dates: start: 20080416
  6. ISMN [Concomitant]
     Indication: ANGINA PECTORIS
  7. NICORANDIL [Concomitant]
     Indication: MYOCARDIAL ISCHAEMIA
     Dosage: 20 MG, BID
     Route: 065
     Dates: start: 20080416
  8. NICORANDIL [Concomitant]
     Indication: ANGINA PECTORIS
  9. OLMESARTAN MEDOXOMIL [Concomitant]
     Indication: MYOCARDIAL ISCHAEMIA
     Dosage: 10 MG, QD
     Route: 065
     Dates: start: 20080428
  10. OLMESARTAN MEDOXOMIL [Concomitant]
     Indication: HYPERTENSION
  11. RAMIPRIL [Concomitant]
     Indication: MYOCARDIAL ISCHAEMIA
     Dosage: 2.5 MG, QD
     Route: 065
     Dates: start: 20080416, end: 20080428
  12. RAMIPRIL [Concomitant]
     Indication: HYPERTENSION
  13. PRAVASTATIN [Concomitant]
     Dosage: UNK
     Dates: end: 20080401

REACTIONS (4)
  - CARDIAC FAILURE [None]
  - MEMORY IMPAIRMENT [None]
  - MYOCARDIAL INFARCTION [None]
  - RHABDOMYOLYSIS [None]
